FAERS Safety Report 21112929 (Version 1)
Quarter: 2022Q3

REPORT INFORMATION
  Report Type: Spontaneous
  Country: CN (occurrence: CN)
  Receive Date: 20220721
  Receipt Date: 20220721
  Transmission Date: 20221026
  Serious: Yes (Hospitalization, Other)
  Sender: FDA-Public Use
  Company Number: CN-ORGANON-O2207CHN000930

PATIENT
  Age: 51 Year
  Sex: Male
  Weight: 60 kg

DRUGS (2)
  1. COZAAR [Suspect]
     Active Substance: LOSARTAN POTASSIUM
     Indication: Hypertension
     Dosage: 150 MILLIGRAM, QD (CONSUMED DOSE), PRESCRIBED DOSE: 150 MILLIGRAM, QD, 100 MG IN THE MORNING AND 50
     Route: 048
     Dates: start: 20220617, end: 20220624
  2. HERBALS [Suspect]
     Active Substance: HERBALS
     Indication: Glomerulonephritis chronic
     Dosage: 100 MILLIGRAM, TID (CONSUMED DOSE), PRESCRIBED DOSE: 50 MG TID PO
     Route: 048
     Dates: start: 20220617, end: 20220624

REACTIONS (5)
  - Hospitalisation [Unknown]
  - Renal impairment [Recovered/Resolved]
  - Rash [Recovered/Resolved]
  - Asthenia [Recovered/Resolved]
  - Intentional product misuse [Unknown]

NARRATIVE: CASE EVENT DATE: 20220101
